FAERS Safety Report 8606634-2 (Version None)
Quarter: 2012Q3

REPORT INFORMATION
  Report Type: 
  Country: None (occurrence: None)
  Receive Date: 20120820
  Receipt Date: 20120810
  Transmission Date: 20120928
  Serious: Yes (Hospitalization, Other)
  Sender: FDA-Public Use
  Company Number: US-CELGENEUS-163-21880-12081501

PATIENT
  Sex: Male

DRUGS (6)
  1. COUMADIN [Concomitant]
     Route: 065
  2. STEROIDS [Concomitant]
     Route: 065
  3. METFORMIN HCL [Concomitant]
     Route: 065
  4. SIMVASTATIN [Concomitant]
     Route: 065
  5. REVLIMID [Suspect]
     Indication: MULTIPLE MYELOMA
     Dosage: 25 MILLIGRAM
     Route: 048
     Dates: start: 20120519
  6. OXYCODONE HCL [Concomitant]
     Route: 065

REACTIONS (5)
  - CHEST PAIN [None]
  - DISORIENTATION [None]
  - RASH [None]
  - CARDIAC DISORDER [None]
  - DIABETES MELLITUS [None]
